FAERS Safety Report 6719926-9 (Version None)
Quarter: 2010Q2

REPORT INFORMATION
  Report Type: 
  Country: None (occurrence: None)
  Receive Date: 20100507
  Receipt Date: 20100427
  Transmission Date: 20101027
  Serious: Yes (Hospitalization)
  Sender: FDA-Public Use
  Company Number: DSA_43069_2010

PATIENT
  Sex: Male

DRUGS (3)
  1. BUPROPION HCL [Suspect]
     Indication: DEPRESSION
     Dosage: 1 DF ORAL
     Route: 048
  2. TRAZODONE HCL [Suspect]
     Indication: DEPRESSION
     Dosage: 1 DF ORAL
     Route: 048
  3. ANALGESICS (ANALGESICS UNKNOWN) [Suspect]
     Indication: PROCEDURAL PAIN
     Dosage: DF

REACTIONS (2)
  - BLOOD PRESSURE DECREASED [None]
  - DRUG INTERACTION [None]
